FAERS Safety Report 5903845-1 (Version None)
Quarter: 2008Q3

REPORT INFORMATION
  Report Type: 
  Country: None (occurrence: None)
  Receive Date: 20080919
  Receipt Date: 20080826
  Transmission Date: 20090109
  Serious: Yes (Other)
  Sender: FDA-Public Use
  Company Number: US-WYE-H05723008

PATIENT
  Sex: Female

DRUGS (2)
  1. PRISTIQ [Suspect]
     Dosage: ORAL
     Route: 048
  2. TYLENOL PM (DIPHENHYDRAMINE/PARACETAMOL, ) [Suspect]
     Dosage: UNKNOWN OVERDOSE AMOUNT, ORAL
     Route: 048

REACTIONS (1)
  - OVERDOSE [None]
